FAERS Safety Report 18378282 (Version 2)
Quarter: 2025Q4

REPORT INFORMATION
  Report Type: Spontaneous
  Country: CA (occurrence: CA)
  Receive Date: 20201013
  Receipt Date: 20251224
  Transmission Date: 20260118
  Serious: No
  Sender: Jubilant Radiopharma
  Company Number: CA-JUBILANT PHARMA LTD-2020CA000680

PATIENT
  Age: 55 Year
  Sex: Female

DRUGS (1)
  1. RUBY-FILL [Suspect]
     Active Substance: RUBIDIUM CHLORIDE RB-82
     Indication: Scan myocardial perfusion
     Dosage: UNK
     Dates: start: 20200615, end: 20200615

REACTIONS (8)
  - Pain [Not Recovered/Not Resolved]
  - Renal pain [Not Recovered/Not Resolved]
  - Decreased appetite [Not Recovered/Not Resolved]
  - Sleep disorder [Not Recovered/Not Resolved]
  - Back pain [Not Recovered/Not Resolved]
  - Pain [Not Recovered/Not Resolved]
  - Paraesthesia [Not Recovered/Not Resolved]
  - Headache [Not Recovered/Not Resolved]
